FAERS Safety Report 21314505 (Version 1)
Quarter: 2022Q3

REPORT INFORMATION
  Report Type: Spontaneous
  Country: US (occurrence: US)
  Receive Date: 20220909
  Receipt Date: 20220909
  Transmission Date: 20221027
  Serious: No
  Sender: FDA-Public Use
  Company Number: US-PFIZER INC-202201139389

PATIENT
  Age: 64 Year
  Sex: Female
  Weight: 51.26 kg

DRUGS (2)
  1. LEVOXYL [Suspect]
     Active Substance: LEVOTHYROXINE SODIUM
     Indication: Autoimmune thyroiditis
     Dosage: 0.75MCG 5 DAYS A WEEK AND THEN ON SUNDAYS AND WEDNESDAYS TAKES 0.50MCG
     Route: 048
     Dates: start: 1997
  2. LEVOTHYROXINE [Suspect]
     Active Substance: LEVOTHYROXINE
     Dosage: UNK

REACTIONS (2)
  - Food allergy [Not Recovered/Not Resolved]
  - Off label use [Not Recovered/Not Resolved]
